FAERS Safety Report 23757337 (Version 1)
Quarter: 2024Q2

REPORT INFORMATION
  Report Type: Spontaneous
  Country: DE (occurrence: DE)
  Receive Date: 20240418
  Receipt Date: 20240418
  Transmission Date: 20240716
  Serious: Yes (Other)
  Sender: FDA-Public Use
  Company Number: None

PATIENT
  Age: 39 Year
  Sex: Male
  Weight: 88 kg

DRUGS (1)
  1. EUTHYROX [Suspect]
     Active Substance: LEVOTHYROXINE SODIUM
     Indication: Hypothyroidism
     Dosage: 100 (UNIT UNSPECIFIED)
     Route: 048
     Dates: start: 20120801, end: 20240405

REACTIONS (2)
  - Type 2 diabetes mellitus [Recovered/Resolved with Sequelae]
  - Blood glucose increased [Recovered/Resolved with Sequelae]

NARRATIVE: CASE EVENT DATE: 20200801
